FAERS Safety Report 12140498 (Version 4)
Quarter: 2016Q2

REPORT INFORMATION
  Report Type: Report from Study
  Country: US (occurrence: US)
  Receive Date: 20160303
  Receipt Date: 20160609
  Transmission Date: 20160815
  Serious: Yes (Other)
  Sender: FDA-Public Use
  Company Number: PHEH2016US005199

PATIENT
  Sex: Female
  Weight: 72.56 kg

DRUGS (1)
  1. GILENYA [Suspect]
     Active Substance: FINGOLIMOD HYDROCHLORIDE
     Indication: MULTIPLE SCLEROSIS
     Dosage: 0.5 MG, QD
     Route: 048
     Dates: start: 20150902

REACTIONS (10)
  - Upper respiratory tract infection [Recovering/Resolving]
  - Tremor [Recovering/Resolving]
  - Limb discomfort [Recovering/Resolving]
  - Apathy [Recovering/Resolving]
  - Gait disturbance [Recovering/Resolving]
  - Middle ear effusion [Recovering/Resolving]
  - Multiple sclerosis relapse [Recovering/Resolving]
  - Primary progressive multiple sclerosis [Recovering/Resolving]
  - Optic nerve injury [Recovering/Resolving]
  - Malaise [Recovering/Resolving]
